FAERS Safety Report 5405700-2 (Version None)
Quarter: 2007Q3

REPORT INFORMATION
  Report Type: 
  Country: None (occurrence: None)
  Receive Date: 20070801
  Receipt Date: 20070720
  Transmission Date: 20080115
  Serious: Yes (Hospitalization)
  Sender: FDA-Public Use
  Company Number: 238356K06USA

PATIENT
  Age: 51 Year
  Sex: Female

DRUGS (5)
  1. REBIF [Suspect]
     Indication: MULTIPLE SCLEROSIS
     Dates: end: 20061004
  2. REBIF [Suspect]
     Dates: start: 20061108, end: 20060101
  3. REBIF [Suspect]
     Dosage: 44 MCG, 3 I 1 WEEKS, SUBCUTANEOUS
     Route: 058
     Dates: start: 20060101
  4. LIPITOR [Concomitant]
  5. TRICOR [Concomitant]

REACTIONS (1)
  - PNEUMONIA [None]
